FAERS Safety Report 16971670 (Version 1)
Quarter: 2019Q4

REPORT INFORMATION
  Report Type: Spontaneous
  Country: US (occurrence: US)
  Receive Date: 20191029
  Receipt Date: 20191029
  Transmission Date: 20200122
  Serious: No
  Sender: FDA-Public Use
  Company Number: US-PERRIGO-18US013752

PATIENT
  Age: 76 Year
  Sex: Female
  Weight: 52.15 kg

DRUGS (1)
  1. MESALAZINE [Suspect]
     Active Substance: MESALAMINE
     Indication: COLITIS
     Dosage: 60 ML, QHS
     Route: 054
     Dates: start: 20181121

REACTIONS (1)
  - Application site discomfort [Recovered/Resolved]

NARRATIVE: CASE EVENT DATE: 20181121
